FAERS Safety Report 12425056 (Version 2)
Quarter: 2019Q1

REPORT INFORMATION
  Report Type: Report from Study
  Country: DE (occurrence: DE)
  Receive Date: 20160601
  Receipt Date: 20190123
  Transmission Date: 20190417
  Serious: Yes (Death, Hospitalization, Other)
  Sender: FDA-Public Use
  Company Number: DE-INCYTE CORPORATION-2013IN001531

PATIENT

DRUGS (14)
  1. LITALIR [Concomitant]
     Active Substance: HYDROXYUREA
     Indication: MYELOFIBROSIS
     Dosage: 2500 MG, QD
     Route: 065
     Dates: start: 20130729
  2. SYREA [Concomitant]
     Active Substance: HYDROXYUREA
     Dosage: 2000 MG, UNK
     Route: 065
     Dates: start: 20130606
  3. INCB018424 [Suspect]
     Active Substance: RUXOLITINIB
     Dosage: 5 MG, BID (2DF PER DAY)
     Route: 048
     Dates: start: 20140228, end: 20140311
  4. INCB018424 [Suspect]
     Active Substance: RUXOLITINIB
     Indication: MYELOFIBROSIS
     Dosage: 15 MG, BID (2DF PER DAY)
     Route: 048
     Dates: start: 20130221
  5. SYREA [Concomitant]
     Active Substance: HYDROXYUREA
     Indication: PRODUCT USED FOR UNKNOWN INDICATION
     Dosage: 2500 MG, QD
     Route: 065
     Dates: start: 20130122, end: 20130602
  6. SYREA [Concomitant]
     Active Substance: HYDROXYUREA
     Dosage: 1500 MG, QD
     Route: 065
     Dates: start: 20130603, end: 20130605
  7. INCB018424 [Suspect]
     Active Substance: RUXOLITINIB
     Dosage: 15 MG, BID (2DF PER DAY)
     Route: 048
     Dates: start: 20131115, end: 20140227
  8. METAMIZOLE [Concomitant]
     Active Substance: METAMIZOLE
     Indication: ABDOMINAL PAIN
     Dosage: 120 DRP, QD
     Route: 065
  9. INCB018424 [Suspect]
     Active Substance: RUXOLITINIB
     Dosage: 30 MG, QD
     Route: 048
     Dates: start: 20130901, end: 20131030
  10. HYDROMORPHONE [Suspect]
     Active Substance: HYDROMORPHONE
     Indication: SPLENOMEGALY
  11. RAMIPRIL. [Concomitant]
     Active Substance: RAMIPRIL
     Indication: PRODUCT USED FOR UNKNOWN INDICATION
     Dosage: 5 MG, QD
     Route: 065
     Dates: start: 20100419, end: 2013
  12. TILIDINE [Concomitant]
     Active Substance: TILIDINE
     Indication: ABDOMINAL PAIN
     Dosage: 50 MG, BID
     Route: 065
     Dates: start: 20130603, end: 20130605
  13. HYDROMORPHONE [Suspect]
     Active Substance: HYDROMORPHONE
     Indication: ABDOMINAL PAIN
     Dosage: 08 MG, BID (2 DF DAILY)
     Route: 065
     Dates: start: 20130606, end: 20130612
  14. LEVOFLOXACIN. [Concomitant]
     Active Substance: LEVOFLOXACIN
     Indication: C-REACTIVE PROTEIN INCREASED
     Dosage: 500 MG, QD
     Route: 065
     Dates: start: 20130604, end: 20130605

REACTIONS (11)
  - Glomerular filtration rate decreased [Unknown]
  - Dizziness [Recovered/Resolved]
  - Neutrophil count increased [Unknown]
  - Splenomegaly [Recovered/Resolved]
  - Platelet count decreased [Unknown]
  - Haemoglobin decreased [Recovering/Resolving]
  - White blood cell count increased [Unknown]
  - Asthenia [Recovered/Resolved]
  - C-reactive protein increased [Recovering/Resolving]
  - Acute myeloid leukaemia [Fatal]
  - Blood lactate dehydrogenase increased [Unknown]

NARRATIVE: CASE EVENT DATE: 20130603
